FAERS Safety Report 6257381-6 (Version None)
Quarter: 2009Q3

REPORT INFORMATION
  Report Type: 
  Country: None (occurrence: None)
  Receive Date: 20090701
  Receipt Date: 20090701
  Transmission Date: 20100115
  Serious: Yes (Other)
  Sender: FDA-Public Use
  Company Number: None

PATIENT
  Age: 57 Year
  Sex: Female
  Weight: 124.2856 kg

DRUGS (2)
  1. CYMBALTA [Suspect]
     Indication: DEPRESSION
     Dosage: 60MG Q DAY PO
     Route: 048
     Dates: start: 20090401, end: 20090630
  2. ULTRAM [Suspect]
     Indication: FIBROMYALGIA
     Dosage: 100MG Q HS PO
     Route: 048
     Dates: start: 20051209, end: 20090601

REACTIONS (2)
  - MUSCULAR WEAKNESS [None]
  - TREMOR [None]
